FAERS Safety Report 24872782 (Version 5)
Quarter: 2025Q2

REPORT INFORMATION
  Report Type: Spontaneous
  Country: US (occurrence: US)
  Receive Date: 20250122
  Receipt Date: 20250623
  Transmission Date: 20250716
  Serious: Yes (Hospitalization)
  Sender: BRISTOL-MYERS SQUIBB COMPANY
  Company Number: US-BRISTOL-MYERS SQUIBB COMPANY-2025-006000

PATIENT
  Age: 75 Year
  Sex: Female

DRUGS (3)
  1. POMALYST [Suspect]
     Active Substance: POMALIDOMIDE
     Indication: Plasma cell myeloma
     Dosage: TAKE 1 CAPSULE WHOLE BY MOUTH WITH WATER, 2HRS FROM FOOD, AT ABOUT SAME TIME DAILY FOR 21 DAYS THEN
     Route: 048
  2. POMALYST [Suspect]
     Active Substance: POMALIDOMIDE
     Dosage: TAKE 1 CAPSULE WHOLE BY MOUTH WITH WATER, 2HRS FROM FOOD, AT ABOUT SAME TIME DAILY FOR 21 DAYS THEN
     Route: 048
  3. POMALYST [Suspect]
     Active Substance: POMALIDOMIDE
     Dosage: TAKE 1 CAPSULE WHOLE BY MOUTH WITH WATER, 2HRS FROM FOOD, AT ABOUT SAME TIME DAILY FOR 21 DAYS THEN
     Route: 048

REACTIONS (8)
  - Illness [Recovered/Resolved]
  - Dizziness [Not Recovered/Not Resolved]
  - Increased appetite [Not Recovered/Not Resolved]
  - Fatigue [Not Recovered/Not Resolved]
  - Paraesthesia oral [Not Recovered/Not Resolved]
  - Fungal infection [Unknown]
  - Anxiety [Unknown]
  - Renal disorder [Unknown]
